FAERS Safety Report 4691513-6 (Version None)
Quarter: 2005Q2

REPORT INFORMATION
  Report Type: 
  Country: None (occurrence: None)
  Receive Date: 20050608
  Receipt Date: 20040910
  Transmission Date: 20051028
  Serious: Yes (Other)
  Sender: FDA-Public Use
  Company Number: 358616

PATIENT
  Age: 15 Year
  Sex: Female
  Weight: 59 kg

DRUGS (1)
  1. ACCUTANE [Suspect]
     Indication: ACNE
     Dosage: 40 MG 2 PER DAY ORAL
     Route: 048
     Dates: start: 20030618, end: 20031015

REACTIONS (13)
  - ALOPECIA [None]
  - BACK PAIN [None]
  - BENIGN INTRACRANIAL HYPERTENSION [None]
  - BLOOD TRIGLYCERIDES INCREASED [None]
  - DRY SKIN [None]
  - EPISTAXIS [None]
  - HEADACHE [None]
  - LIP DRY [None]
  - MOOD SWINGS [None]
  - OPTIC NEURITIS [None]
  - PAPILLOEDEMA [None]
  - VISION BLURRED [None]
  - VISUAL DISTURBANCE [None]
